FAERS Safety Report 8452127-5 (Version None)
Quarter: 2012Q2

REPORT INFORMATION
  Report Type: 
  Country: None (occurrence: None)
  Receive Date: 20120620
  Receipt Date: 20120612
  Transmission Date: 20120825
  Serious: Yes (Hospitalization)
  Sender: FDA-Public Use
  Company Number: US-GLAXOSMITHKLINE-A0980972A

PATIENT
  Age: 14 Year
  Sex: Male

DRUGS (4)
  1. VIMPAT [Suspect]
     Dates: start: 20100101
  2. SERTRALINE HYDROCHLORIDE [Concomitant]
  3. LAMICTAL [Suspect]
     Indication: EPILEPSY
     Dosage: 300MG TWICE PER DAY
     Route: 048
     Dates: start: 20100101
  4. TEGRETOL [Suspect]
     Dates: start: 20111101

REACTIONS (4)
  - DIZZINESS [None]
  - ANXIETY [None]
  - CONVULSION [None]
  - CYANOSIS [None]
